FAERS Safety Report 7141776-2 (Version None)
Quarter: 2010Q4

REPORT INFORMATION
  Report Type: 
  Country: None (occurrence: None)
  Receive Date: 20101207
  Receipt Date: 20101124
  Transmission Date: 20110411
  Serious: Yes (Hospitalization)
  Sender: FDA-Public Use
  Company Number: DK-GENENTECH-310372

PATIENT
  Sex: Male
  Weight: 76 kg

DRUGS (1)
  1. MABTHERA [Suspect]
     Indication: HENOCH-SCHONLEIN PURPURA
     Dosage: 1000 MG, 1/MONTH
     Route: 042
     Dates: start: 20101022, end: 20101119

REACTIONS (6)
  - COLD SWEAT [None]
  - DEPRESSED LEVEL OF CONSCIOUSNESS [None]
  - DIZZINESS [None]
  - HEART RATE DECREASED [None]
  - HYPERHIDROSIS [None]
  - VOMITING [None]
